FAERS Safety Report 6930195-7 (Version None)
Quarter: 2010Q3

REPORT INFORMATION
  Report Type: 
  Country: None (occurrence: None)
  Receive Date: 20100818
  Receipt Date: 20100806
  Transmission Date: 20110219
  Serious: Yes (Hospitalization)
  Sender: FDA-Public Use
  Company Number: PHRM2008FR01217

PATIENT
  Age: 34 Year
  Sex: Female

DRUGS (3)
  1. NEORAL [Suspect]
     Indication: NEPHROTIC SYNDROME
     Route: 048
     Dates: end: 20070715
  2. CORTICOSTEROIDS [Suspect]
     Indication: THREATENED LABOUR
     Dosage: UNK
     Dates: end: 20070625
  3. CORTICOSTEROIDS [Suspect]
     Dates: start: 20070714, end: 20070715

REACTIONS (6)
  - BREECH PRESENTATION [None]
  - CAESAREAN SECTION [None]
  - DRUG EXPOSURE DURING PREGNANCY [None]
  - PREMATURE LABOUR [None]
  - PREMATURE RUPTURE OF MEMBRANES [None]
  - THREATENED LABOUR [None]
